FAERS Safety Report 19332556 (Version 2)
Quarter: 2021Q3

REPORT INFORMATION
  Report Type: Spontaneous
  Country: CO (occurrence: CO)
  Receive Date: 20210529
  Receipt Date: 20210827
  Transmission Date: 20211014
  Serious: Yes (Hospitalization)
  Sender: FDA-Public Use
  Company Number: CO-LEADINGPHARMA-CO-2021LEALIT00174

PATIENT
  Age: 72 Year
  Sex: Male

DRUGS (7)
  1. LORAZEPAM TABLETS USP [Suspect]
     Active Substance: LORAZEPAM
     Indication: ALCOHOL WITHDRAWAL SYNDROME
     Route: 048
  2. RIFAXIMIN. [Concomitant]
     Active Substance: RIFAXIMIN
     Indication: PRODUCT USED FOR UNKNOWN INDICATION
     Route: 065
  3. LACTULOSE. [Concomitant]
     Active Substance: LACTULOSE
     Indication: PRODUCT USED FOR UNKNOWN INDICATION
     Route: 065
  4. SPIRONOLACTONE. [Concomitant]
     Active Substance: SPIRONOLACTONE
     Indication: PRODUCT USED FOR UNKNOWN INDICATION
     Route: 065
  5. HALOPERIDOL. [Interacting]
     Active Substance: HALOPERIDOL
     Indication: ALCOHOL WITHDRAWAL SYNDROME
     Route: 065
  6. THIAMINE. [Interacting]
     Active Substance: THIAMINE
     Indication: ALCOHOL WITHDRAWAL SYNDROME
     Route: 065
  7. LORAZEPAM TABLETS USP [Suspect]
     Active Substance: LORAZEPAM
     Route: 065

REACTIONS (4)
  - Condition aggravated [Recovering/Resolving]
  - Hepatic encephalopathy [Recovering/Resolving]
  - Hyperammonaemia [Recovering/Resolving]
  - Product use in unapproved indication [None]
